FAERS Safety Report 8108417-9 (Version None)
Quarter: 2012Q1

REPORT INFORMATION
  Report Type: 
  Country: None (occurrence: None)
  Receive Date: 20120202
  Receipt Date: 20120112
  Transmission Date: 20120608
  Serious: No
  Sender: FDA-Public Use
  Company Number: US-AMGEN-USASP2012002192

PATIENT
  Age: 29 Year
  Sex: Female

DRUGS (2)
  1. ENBREL [Suspect]
     Indication: PSORIATIC ARTHROPATHY
     Dosage: 50 MG, 2 TIMES/WK
     Route: 058
     Dates: start: 20111201
  2. ENBREL [Suspect]
     Indication: PSORIASIS

REACTIONS (2)
  - INJECTION SITE URTICARIA [None]
  - INJECTION SITE ERYTHEMA [None]
